FAERS Safety Report 6064738-5 (Version None)
Quarter: 2009Q1

REPORT INFORMATION
  Report Type: 
  Country: None (occurrence: None)
  Receive Date: 20090204
  Receipt Date: 20081006
  Transmission Date: 20090719
  Serious: Yes (Other)
  Sender: FDA-Public Use
  Company Number: A0747055A

PATIENT
  Age: 53 Year
  Sex: Male

DRUGS (18)
  1. ARIXTRA [Suspect]
     Dosage: 5MG PER DAY
     Route: 058
     Dates: start: 20080818, end: 20080902
  2. COUMADIN [Concomitant]
  3. ALBUTEROL SULATE [Concomitant]
  4. UNKNOWN [Concomitant]
  5. BACTRIM [Concomitant]
  6. CELEXA [Concomitant]
  7. CIPRO [Concomitant]
  8. COLISTIN SULFATE [Concomitant]
  9. CLONOPIN [Concomitant]
  10. LABETALOL HCL [Concomitant]
  11. LIPITOR [Concomitant]
  12. LORATADINE [Concomitant]
  13. METAMUCIL [Concomitant]
  14. NYSTATIN OINTMENT [Concomitant]
  15. PREDNISONE [Concomitant]
  16. PREVACID [Concomitant]
  17. PROGRAF [Concomitant]
  18. VALCYTE [Concomitant]

REACTIONS (1)
  - THROMBOCYTOPENIA [None]
